FAERS Safety Report 7602493-5 (Version None)
Quarter: 2011Q3

REPORT INFORMATION
  Report Type: 
  Country: None (occurrence: None)
  Receive Date: 20110712
  Receipt Date: 20110701
  Transmission Date: 20111222
  Serious: Yes (Other)
  Sender: FDA-Public Use
  Company Number: JP-BRISTOL-MYERS SQUIBB COMPANY-15746852

PATIENT
  Age: 36 Year
  Sex: Female

DRUGS (3)
  1. ZOLOFT [Concomitant]
     Dosage: TABS
  2. ABILIFY [Suspect]
     Route: 048
  3. LORAZEPAM [Concomitant]
     Dosage: TABS

REACTIONS (2)
  - ABORTION INDUCED [None]
  - PREGNANCY [None]
